FAERS Safety Report 17879951 (Version 1)
Quarter: 2020Q2

REPORT INFORMATION
  Report Type: Report from Study
  Country: CA (occurrence: CA)
  Receive Date: 20200610
  Receipt Date: 20200610
  Transmission Date: 20200714
  Serious: Yes (Other)
  Sender: FDA-Public Use
  Company Number: PHHY2018CA000552

PATIENT
  Age: 54 Year
  Sex: Male

DRUGS (3)
  1. ZOFRAN [Concomitant]
     Active Substance: ONDANSETRON HYDROCHLORIDE
     Indication: PRODUCT USED FOR UNKNOWN INDICATION
     Dosage: UNK
     Route: 065
  2. SANDOSTATIN LAR DEPOT [Suspect]
     Active Substance: OCTREOTIDE ACETATE
     Indication: CARCINOID TUMOUR
     Dosage: 30 MG, QMO (EVERY 4 WEEKS)
     Route: 030
     Dates: start: 20180329
  3. VIMOVO [Concomitant]
     Active Substance: ESOMEPRAZOLE MAGNESIUM\NAPROXEN
     Indication: PRODUCT USED FOR UNKNOWN INDICATION
     Dosage: UNK
     Route: 065

REACTIONS (18)
  - Herpes zoster [Recovering/Resolving]
  - Poor quality sleep [Unknown]
  - Blood pressure systolic increased [Unknown]
  - Skin lesion [Unknown]
  - Retching [Unknown]
  - Nausea [Unknown]
  - Diarrhoea [Unknown]
  - Contusion [Unknown]
  - Injection site haemorrhage [Unknown]
  - Platelet count decreased [Unknown]
  - Fatigue [Not Recovered/Not Resolved]
  - Faeces soft [Unknown]
  - Blood pressure decreased [Unknown]
  - Petechiae [Unknown]
  - Frequent bowel movements [Not Recovered/Not Resolved]
  - Blood pressure diastolic increased [Unknown]
  - Renal disorder [Unknown]
  - Weight decreased [Unknown]

NARRATIVE: CASE EVENT DATE: 20180426
